FAERS Safety Report 9454694 (Version 2)
Quarter: 2013Q3

REPORT INFORMATION
  Report Type: Report from Study
  Country: US (occurrence: US)
  Receive Date: 20130812
  Receipt Date: 20130822
  Transmission Date: 20140515
  Serious: Yes (Hospitalization)
  Sender: FDA-Public Use
  Company Number: US-ROCHE-1234453

PATIENT
  Sex: Female

DRUGS (2)
  1. LUCENTIS [Suspect]
     Indication: DIABETIC RETINAL OEDEMA
     Route: 031
  2. LUCENTIS [Suspect]
     Indication: DIABETIC RETINOPATHY
     Route: 065
     Dates: start: 20130627

REACTIONS (8)
  - Pulmonary oedema [Unknown]
  - Lacrimation increased [Unknown]
  - Eye irritation [Unknown]
  - Asthenopia [Unknown]
  - Photopsia [Unknown]
  - Photosensitivity reaction [Not Recovered/Not Resolved]
  - Eye pain [Not Recovered/Not Resolved]
  - Metamorphopsia [Unknown]
